FAERS Safety Report 4833155-5 (Version None)
Quarter: 2005Q4

REPORT INFORMATION
  Report Type: 
  Country: None (occurrence: None)
  Receive Date: 20051117
  Receipt Date: 20051104
  Transmission Date: 20060501
  Serious: Yes (Hospitalization, Other)
  Sender: FDA-Public Use
  Company Number: 2005144734

PATIENT
  Sex: Male

DRUGS (7)
  1. BEXTRA [Suspect]
     Indication: ARTHRITIS
     Dosage: (20 MG, DAILY)
     Dates: start: 20040101
  2. BEXTRA [Suspect]
     Indication: PAIN
     Dosage: (20 MG, DAILY)
     Dates: start: 20040101
  3. MS CONTIN [Suspect]
     Indication: ILL-DEFINED DISORDER
     Dates: start: 20050801, end: 20051001
  4. INTERFERON (INTERFERON) [Suspect]
     Indication: HEPATITIS C
  5. CHEMOTHERAPY NOS (CHEMOTHERAPY NOS) [Suspect]
     Indication: HEPATITIS C
  6. OXYCONTIN [Concomitant]
  7. NEURONTIN [Concomitant]

REACTIONS (12)
  - BONE DISORDER [None]
  - COMPRESSION FRACTURE [None]
  - DIFFICULTY IN WALKING [None]
  - DRY MOUTH [None]
  - FOOT FRACTURE [None]
  - INCORRECT DOSE ADMINISTERED [None]
  - MOBILITY DECREASED [None]
  - MULTIPLE FRACTURES [None]
  - OSTEOPOROSIS [None]
  - PAIN [None]
  - UNEVALUABLE EVENT [None]
  - WEIGHT DECREASED [None]
